FAERS Safety Report 20105471 (Version 1)
Quarter: 2021Q4

REPORT INFORMATION
  Report Type: Spontaneous
  Country: PL (occurrence: PL)
  Receive Date: 20211124
  Receipt Date: 20211124
  Transmission Date: 20220304
  Serious: Yes (Hospitalization)
  Sender: FDA-Public Use
  Company Number: None

PATIENT
  Age: 69 Year
  Sex: Male
  Weight: 60 kg

DRUGS (3)
  1. DEXAMETHASONE [Suspect]
     Active Substance: DEXAMETHASONE
     Indication: Chronic obstructive pulmonary disease
     Dosage: X 1
     Route: 042
     Dates: start: 20201205, end: 20201211
  2. TAROMENTIN [Concomitant]
     Indication: Chronic obstructive pulmonary disease
     Dosage: 3 X 1.2 (UNIT UNKNOWN)
     Route: 042
     Dates: start: 20201205, end: 20201212
  3. FRAXIMULTI [Concomitant]
     Indication: Chronic respiratory failure
     Dosage: DOSE: 1.0.4 UNIT UNKNOWN
     Route: 058
     Dates: start: 20201205, end: 20201212

REACTIONS (1)
  - Oedema peripheral [Recovered/Resolved]

NARRATIVE: CASE EVENT DATE: 20201208
